FAERS Safety Report 10083441 (Version 1)
Quarter: 2014Q2

REPORT INFORMATION
  Report Type: Spontaneous
  Country: US (occurrence: None)
  Receive Date: 20140416
  Receipt Date: 20140416
  Transmission Date: 20141212
  Serious: No
  Sender: FDA-Public Use
  Company Number: None

PATIENT
  Age: 65 Year
  Sex: Female
  Weight: 73.48 kg

DRUGS (1)
  1. DULOXETINE HCL [Suspect]
     Indication: ARTHRITIS
     Dosage: 1 CAP, ONCE DAILY, TAKEN BY MOUTH
     Route: 048
     Dates: start: 20140201, end: 20140415

REACTIONS (4)
  - Pain [None]
  - Headache [None]
  - Drug ineffective [None]
  - Product substitution issue [None]
